FAERS Safety Report 12475425 (Version 3)
Quarter: 2016Q3

REPORT INFORMATION
  Report Type: Report from Study
  Country: JP (occurrence: JP)
  Receive Date: 20160617
  Receipt Date: 20160721
  Transmission Date: 20161109
  Serious: Yes (Hospitalization)
  Sender: FDA-Public Use
  Company Number: PHJP2016JP016458

PATIENT
  Age: 14 Year
  Sex: Female
  Weight: 22 kg

DRUGS (11)
  1. ACZ885 [Suspect]
     Active Substance: CANAKINUMAB
     Dosage: 88 MG, QD
     Route: 058
     Dates: start: 20120113, end: 20120113
  2. ACZ885 [Suspect]
     Active Substance: CANAKINUMAB
     Dosage: 300 MG, QD
     Route: 058
     Dates: start: 20120524, end: 20120524
  3. ACZ885 [Suspect]
     Active Substance: CANAKINUMAB
     Dosage: 132 MG, QD
     Route: 058
     Dates: start: 20120127, end: 20120127
  4. ACZ885 [Suspect]
     Active Substance: CANAKINUMAB
     Dosage: 184 MG, QD
     Route: 058
     Dates: start: 20120330, end: 20120330
  5. ACZ885 [Suspect]
     Active Substance: CANAKINUMAB
     Dosage: 450 MG, UNK
     Route: 058
     Dates: start: 201601
  6. ACZ885 [Suspect]
     Active Substance: CANAKINUMAB
     Dosage: 240 MG, QD
     Route: 058
     Dates: start: 20120427, end: 20120427
  7. ACZ885 [Suspect]
     Active Substance: CANAKINUMAB
     Indication: CRYOPYRIN ASSOCIATED PERIODIC SYNDROME
     Dosage: 44 MG, QD
     Route: 058
     Dates: start: 20120112, end: 20120112
  8. ACZ885 [Suspect]
     Active Substance: CANAKINUMAB
     Dosage: 150 MG, QD
     Route: 058
     Dates: start: 20120224, end: 20120224
  9. ACZ885 [Suspect]
     Active Substance: CANAKINUMAB
     Dosage: 8 MG/KG, UNK
     Route: 065
  10. ACZ885 [Suspect]
     Active Substance: CANAKINUMAB
     Dosage: 300 MG, QMO
     Route: 058
     Dates: end: 201512
  11. ACZ885 [Suspect]
     Active Substance: CANAKINUMAB
     Dosage: 300 MG, QD
     Route: 058
     Dates: start: 20120622, end: 20120622

REACTIONS (2)
  - Viral myocarditis [Recovered/Resolved]
  - Atrioventricular block [Recovered/Resolved]

NARRATIVE: CASE EVENT DATE: 201604
